FAERS Safety Report 9162574 (Version 1)
Quarter: 2013Q1

REPORT INFORMATION
  Report Type: Spontaneous
  Country: JP (occurrence: JP)
  Receive Date: 20130314
  Receipt Date: 20130314
  Transmission Date: 20140127
  Serious: Yes (Other)
  Sender: FDA-Public Use
  Company Number: JP-SANOFI-AVENTIS-2013SA022804

PATIENT
  Age: 42 Year
  Sex: Male

DRUGS (1)
  1. LANTUS [Suspect]
     Indication: DIABETES MELLITUS
     Route: 058

REACTIONS (3)
  - Diabetic nephropathy [Unknown]
  - Condition aggravated [Unknown]
  - Weight decreased [Unknown]
